FAERS Safety Report 4378283-6 (Version None)
Quarter: 2004Q2

REPORT INFORMATION
  Report Type: 
  Country: None (occurrence: None)
  Receive Date: 20040609
  Receipt Date: 20040524
  Transmission Date: 20050107
  Serious: Yes (Other)
  Sender: FDA-Public Use
  Company Number: USA040156493

PATIENT
  Age: 83 Year
  Sex: Female

DRUGS (1)
  1. FORTEO [Suspect]
     Dates: start: 20031101

REACTIONS (6)
  - BLOOD PRESSURE FLUCTUATION [None]
  - EYE HAEMORRHAGE [None]
  - IRIS VASCULAR DISORDER [None]
  - NEOVASCULARISATION [None]
  - POST PROCEDURAL COMPLICATION [None]
  - VISUAL ACUITY REDUCED [None]
